FAERS Safety Report 4863596-1 (Version None)
Quarter: 2005Q4

REPORT INFORMATION
  Report Type: 
  Country: None (occurrence: None)
  Receive Date: 20051222
  Receipt Date: 20050516
  Transmission Date: 20060501
  Serious: Yes (Other)
  Sender: FDA-Public Use
  Company Number: US-GLAXOSMITHKLINE-A0558864A

PATIENT
  Age: 62 Year
  Sex: Male
  Weight: 86.4 kg

DRUGS (8)
  1. FLONASE [Suspect]
     Indication: DRUG USE FOR UNKNOWN INDICATION
     Dosage: 1SPR PER DAY
     Route: 045
     Dates: start: 20040402, end: 20050510
  2. ALBUTEROL [Concomitant]
  3. SINGULAIR [Concomitant]
     Dosage: 10MG AT NIGHT
  4. ASTELIN [Concomitant]
     Dosage: 1SPR AT NIGHT
  5. MULTI-VITAMIN [Concomitant]
     Dosage: 1TAB PER DAY
  6. ASCORBIC ACID [Concomitant]
     Dosage: 1000MG TWICE PER DAY
  7. CALCIUM GLUCONATE [Concomitant]
     Dosage: 1000MG PER DAY
  8. Z-PACK [Concomitant]

REACTIONS (2)
  - NASAL SEPTUM PERFORATION [None]
  - PAROSMIA [None]
